FAERS Safety Report 7324509-6 (Version None)
Quarter: 2011Q1

REPORT INFORMATION
  Report Type: 
  Country: None (occurrence: None)
  Receive Date: 20110301
  Receipt Date: 20110221
  Transmission Date: 20110831
  Serious: Yes (Hospitalization)
  Sender: FDA-Public Use
  Company Number: US-B.I. PHARMACEUTICALS,INC./RIDGEFIELD-2010-BP-15078BP

PATIENT
  Sex: Male

DRUGS (16)
  1. METOLAZONE [Concomitant]
  2. ALLOPURINOL [Concomitant]
     Dosage: 100 MG
  3. ZYMAR [Concomitant]
     Route: 031
  4. PRADAXA [Suspect]
     Indication: ATRIAL FIBRILLATION
     Dosage: 300 MG
     Route: 048
     Dates: start: 20101208, end: 20101213
  5. SIMVASTATIN [Concomitant]
     Indication: BLOOD CHOLESTEROL INCREASED
     Dosage: 20 MG
     Route: 048
  6. RENA-VITE [Concomitant]
  7. BUMEX [Concomitant]
     Indication: DIURETIC THERAPY
     Dosage: 0.5 MG
  8. KETOROLAC [Concomitant]
     Route: 031
  9. COUMADIN [Concomitant]
  10. PRADAXA [Suspect]
     Dosage: 150 MG
     Route: 048
     Dates: start: 20101217
  11. PROBIOTIC [Concomitant]
  12. PRED FORTE [Concomitant]
     Route: 031
  13. ASCORBIC ACID [Concomitant]
     Indication: VITAMIN SUPPLEMENTATION
  14. FISH OIL [Concomitant]
     Indication: BLOOD CHOLESTEROL INCREASED
     Dosage: 1200 MG
  15. COENZYME Q10 [Concomitant]
  16. ZEMPLAR [Concomitant]
     Dosage: 25 MG

REACTIONS (10)
  - NASOPHARYNGITIS [None]
  - ABDOMINAL PAIN UPPER [None]
  - EPISTAXIS [None]
  - NAUSEA [None]
  - CONTUSION [None]
  - ABDOMINAL DISCOMFORT [None]
  - ANAEMIA [None]
  - GASTROINTESTINAL HAEMORRHAGE [None]
  - DECREASED APPETITE [None]
  - PALLOR [None]
